FAERS Safety Report 15191766 (Version 3)
Quarter: 2018Q4

REPORT INFORMATION
  Report Type: Report from Study
  Country: JP (occurrence: JP)
  Receive Date: 20180724
  Receipt Date: 20181203
  Transmission Date: 20190204
  Serious: Yes (Hospitalization, Other)
  Sender: FDA-Public Use
  Company Number: JP-BEH-2018093040

PATIENT
  Age: 69 Year
  Sex: Male
  Weight: 80 kg

DRUGS (15)
  1. NICARDIPINE [Concomitant]
     Active Substance: NICARDIPINE
     Indication: PROPHYLAXIS
     Dosage: UNK
     Route: 065
     Dates: start: 20180411, end: 20180414
  2. E KEPPRA [Concomitant]
     Active Substance: LEVETIRACETAM
     Dosage: UNK
     Route: 065
     Dates: start: 20180412, end: 20180414
  3. KAYTWO N [Concomitant]
     Active Substance: MENATETRENONE
     Indication: PROCOAGULANT THERAPY
     Dosage: 10 MG, UNK
     Route: 042
     Dates: start: 20180411, end: 20180411
  4. E KEPPRA [Concomitant]
     Active Substance: LEVETIRACETAM
     Dosage: UNK
     Route: 065
     Dates: start: 20180415, end: 20180501
  5. HUMALOG [Concomitant]
     Active Substance: INSULIN LISPRO
     Dosage: UNK
     Route: 065
     Dates: start: 20180416
  6. XARELTO [Concomitant]
     Active Substance: RIVAROXABAN
     Indication: CEREBRAL INFARCTION
     Dosage: 15 MG, UNK
     Route: 065
     Dates: start: 20180415
  7. HUMULIN R [Concomitant]
     Active Substance: INSULIN HUMAN
     Dosage: UNK
     Route: 065
     Dates: end: 20180416
  8. WARFARIN                           /00014803/ [Concomitant]
     Active Substance: WARFARIN
     Indication: CEREBRAL INFARCTION
     Dosage: 4 MG, UNK
     Route: 048
     Dates: end: 20180411
  9. XARELTO [Concomitant]
     Active Substance: RIVAROXABAN
     Indication: PROPHYLAXIS
  10. WARFARIN                           /00014803/ [Concomitant]
     Active Substance: WARFARIN
     Indication: PROPHYLAXIS
  11. TANATRIL [Concomitant]
     Active Substance: IMIDAPRIL
     Indication: PROPHYLAXIS
     Dosage: UNK
     Route: 065
     Dates: start: 20180415
  12. BERIPLEX P/N [Suspect]
     Active Substance: COAGULATION FACTOR IX HUMAN\COAGULATION FACTOR VII HUMAN\COAGULATION FACTOR X HUMAN\PROTEIN C\PROTEIN S HUMAN\PROTHROMBIN
     Indication: HAEMORRHAGE
     Dosage: 2000 IU, UNK
     Route: 042
     Dates: start: 20180411
  13. AMLODIPINE [Concomitant]
     Active Substance: AMLODIPINE BESYLATE
     Indication: PROPHYLAXIS
     Dosage: UNK
     Route: 065
     Dates: start: 20180415
  14. CIBENOL [Concomitant]
     Active Substance: CIFENLINE
     Route: 048
  15. INSULIN GLARGINE [Concomitant]
     Active Substance: INSULIN GLARGINE
     Dosage: UNK
     Route: 065
     Dates: start: 20180416

REACTIONS (6)
  - Depressed level of consciousness [Unknown]
  - Wound [Recovered/Resolved]
  - Meningitis [Recovering/Resolving]
  - Intracranial haematoma [Unknown]
  - Cerebrospinal fluid leakage [Recovered/Resolved]
  - Pyrexia [Recovering/Resolving]

NARRATIVE: CASE EVENT DATE: 20180412
